FAERS Safety Report 5418471-0 (Version None)
Quarter: 2007Q3

REPORT INFORMATION
  Report Type: 
  Country: None (occurrence: None)
  Receive Date: 20070817
  Receipt Date: 20070807
  Transmission Date: 20080115
  Serious: Yes (Other)
  Sender: FDA-Public Use
  Company Number: US-ELI_LILLY_AND_COMPANY-US200708001587

PATIENT
  Sex: Female
  Weight: 81.632 kg

DRUGS (2)
  1. CYMBALTA [Suspect]
     Dosage: 60 MG, DAILY (1/D)
     Route: 048
     Dates: start: 20060728, end: 20070114
  2. CYMBALTA [Suspect]
     Dosage: 30 MG, DAILY (1/D)
     Route: 048
     Dates: start: 20070115, end: 20070301

REACTIONS (3)
  - EYE DISORDER [None]
  - PHOTOPHOBIA [None]
  - VISUAL ACUITY REDUCED [None]
